FAERS Safety Report 8270673-4 (Version None)
Quarter: 2012Q2

REPORT INFORMATION
  Report Type: 
  Country: None (occurrence: None)
  Receive Date: 20120410
  Receipt Date: 20120328
  Transmission Date: 20120825
  Serious: Yes (Other)
  Sender: FDA-Public Use
  Company Number: US-SANOFI-AVENTIS-2012SA021793

PATIENT
  Age: 71 Year
  Sex: Male
  Weight: 99.3 kg

DRUGS (18)
  1. AMLODIPINE [Concomitant]
  2. BICALUTAMIDE [Concomitant]
  3. PROVENGE [Suspect]
     Indication: PROSTATE CANCER
     Route: 042
     Dates: start: 20111208, end: 20111208
  4. PROVENGE [Suspect]
     Route: 042
     Dates: start: 20111230, end: 20111230
  5. JANUMET [Concomitant]
  6. ATORVASTATIN [Concomitant]
  7. BENICAR [Concomitant]
  8. FLONASE [Concomitant]
  9. CALCIUM CARBONATE [Concomitant]
  10. LORATADINE [Concomitant]
  11. ELIGARD [Suspect]
  12. PROVENGE [Suspect]
     Route: 042
     Dates: start: 20111215, end: 20111215
  13. CASODEX [Suspect]
     Indication: HORMONE THERAPY
     Dates: end: 20111201
  14. ATENOLOL [Concomitant]
  15. ASPIRIN [Concomitant]
  16. XGEVA [Concomitant]
  17. CHOLECALCIFEROL [Concomitant]
  18. CITALOPRAM HYDROBROMIDE [Concomitant]

REACTIONS (8)
  - DYSPNOEA EXERTIONAL [None]
  - AIR EMBOLISM [None]
  - DISEASE PROGRESSION [None]
  - INFLUENZA LIKE ILLNESS [None]
  - LETHARGY [None]
  - HOT FLUSH [None]
  - MYALGIA [None]
  - DECREASED APPETITE [None]
